FAERS Safety Report 5653907-1 (Version None)
Quarter: 2008Q1

REPORT INFORMATION
  Report Type: 
  Country: None (occurrence: None)
  Receive Date: 20080306
  Receipt Date: 20080226
  Transmission Date: 20080703
  Serious: Yes (Death, Other)
  Sender: FDA-Public Use
  Company Number: US-ELI_LILLY_AND_COMPANY-US200802006150

PATIENT
  Age: 35 Year
  Sex: Female
  Weight: 53.968 kg

DRUGS (3)
  1. STRATTERA [Suspect]
     Dosage: 40 MG, UNK
  2. ZOLOFT [Concomitant]
     Dosage: 25 MG, UNK
  3. LORAZEPAM [Concomitant]
     Dosage: 0.5 MG, UNK

REACTIONS (1)
  - COMPLETED SUICIDE [None]
